FAERS Safety Report 23720701 (Version 1)
Quarter: 2024Q2

REPORT INFORMATION
  Report Type: Spontaneous
  Country: US (occurrence: None)
  Receive Date: 20240409
  Receipt Date: 20240409
  Transmission Date: 20240716
  Serious: No
  Sender: FDA-Public Use
  Company Number: 2024A013567

PATIENT

DRUGS (1)
  1. BYDUREON BCISE [Suspect]
     Active Substance: EXENATIDE
     Dosage: 2.0MG UNKNOWN

REACTIONS (4)
  - Diarrhoea [Unknown]
  - Drug dose omission by device [Unknown]
  - Device issue [Unknown]
  - Needle issue [Unknown]
